FAERS Safety Report 5652763-5 (Version None)
Quarter: 2008Q1

REPORT INFORMATION
  Report Type: 
  Country: None (occurrence: None)
  Receive Date: 20080131
  Receipt Date: 20071115
  Transmission Date: 20080703
  Serious: No
  Sender: FDA-Public Use
  Company Number: US200710005245

PATIENT
  Age: 38 Year
  Sex: Female
  Weight: 97.5 kg

DRUGS (13)
  1. BYETTA [Suspect]
     Indication: TYPE 2 DIABETES MELLITUS
     Dosage: 5 UG, 2/D, SUBCUTANEOUS; 10 UG, 2/D, SUBCUTANEOUS
     Route: 058
     Dates: start: 20060401, end: 20060601
  2. BYETTA [Suspect]
     Indication: TYPE 2 DIABETES MELLITUS
     Dosage: 5 UG, 2/D, SUBCUTANEOUS; 10 UG, 2/D, SUBCUTANEOUS
     Route: 058
     Dates: start: 20060601
  3. EXENATIDE 10MCG PEN, DISPOSABLE DEVICE (EXENATIDE OEN (10MCG)) PEN,DIS [Concomitant]
  4. EXENATIDE 10MCG PEN, DISPOSABLE DEVICE (EXENATIDE PEN (10MCG)) PEN,DIS [Concomitant]
  5. METFORMIN HCL [Concomitant]
  6. AMARYL [Concomitant]
  7. TENORMIN [Concomitant]
  8. AVALIDE [Concomitant]
  9. ASPIRIN [Concomitant]
  10. MULTIVITAMIN [Concomitant]
  11. LIPITOR [Concomitant]
  12. VITAMIN B [Concomitant]
  13. FOLIC ACID [Concomitant]

REACTIONS (10)
  - ANXIETY [None]
  - ARTHRALGIA [None]
  - CARPAL TUNNEL DECOMPRESSION [None]
  - DECREASED APPETITE [None]
  - FATIGUE [None]
  - JOINT INJURY [None]
  - NAUSEA [None]
  - NODULE ON EXTREMITY [None]
  - VOMITING [None]
  - WEIGHT DECREASED [None]
